FAERS Safety Report 10301439 (Version 10)
Quarter: 2016Q3

REPORT INFORMATION
  Report Type: Spontaneous
  Country: US (occurrence: US)
  Receive Date: 20140714
  Receipt Date: 20160817
  Transmission Date: 20161109
  Serious: Yes (Other)
  Sender: FDA-Public Use
  Company Number: US-009507513-1407USA004475

PATIENT
  Sex: Female
  Weight: 80.1 kg

DRUGS (9)
  1. ALENDRONATE SODIUM. [Suspect]
     Active Substance: ALENDRONATE SODIUM
     Indication: BONE PAIN
  2. FOSAMAX PLUS D [Suspect]
     Active Substance: ALENDRONATE SODIUM\CHOLECALCIFEROL
     Indication: BONE PAIN
  3. FOSAMAX PLUS D [Suspect]
     Active Substance: ALENDRONATE SODIUM\CHOLECALCIFEROL
     Indication: OSTEOPOROSIS
     Dosage: UNK UNK, QW
     Route: 048
     Dates: start: 200707, end: 201210
  4. FOSAMAX [Suspect]
     Active Substance: ALENDRONATE SODIUM
     Indication: OSTEOPENIA
     Dosage: 70 MG, QW
     Route: 048
     Dates: start: 20020820, end: 20121020
  5. ALENDRONATE SODIUM. [Suspect]
     Active Substance: ALENDRONATE SODIUM
     Indication: OSTEOPENIA
  6. ALENDRONATE SODIUM. [Suspect]
     Active Substance: ALENDRONATE SODIUM
     Indication: OSTEOPOROSIS
     Dosage: 70 MG, UNK
     Route: 065
     Dates: start: 20090126, end: 20120923
  7. INDERAL [Concomitant]
     Active Substance: PROPRANOLOL HYDROCHLORIDE
     Indication: TACHYCARDIA
     Dosage: UNK
     Route: 065
     Dates: start: 1985
  8. FOSAMAX [Suspect]
     Active Substance: ALENDRONATE SODIUM
     Indication: OSTEOPOROSIS
     Dosage: 10 MG, QD
     Route: 048
     Dates: start: 20000808, end: 20020820
  9. FOSAMAX [Suspect]
     Active Substance: ALENDRONATE SODIUM
     Indication: BONE PAIN

REACTIONS (38)
  - Cough [Unknown]
  - Hypothyroidism [Unknown]
  - Mass [Unknown]
  - Osteoporosis [Unknown]
  - Skin lesion [Unknown]
  - Spinal osteoarthritis [Unknown]
  - Osteoarthritis [Unknown]
  - Neoplasm malignant [Unknown]
  - Varicose vein [Unknown]
  - Adverse drug reaction [Unknown]
  - Mitral valve prolapse [Unknown]
  - Osteonecrosis of jaw [Unknown]
  - Angina pectoris [Unknown]
  - Back pain [Unknown]
  - Cardiac murmur [Unknown]
  - Limb injury [Unknown]
  - Osteoarthritis [Unknown]
  - Micturition urgency [Unknown]
  - Hypercalcaemia [Unknown]
  - Blood cholesterol increased [Unknown]
  - Parathyroid gland enlargement [Unknown]
  - Bladder irritation [Unknown]
  - Pain in extremity [Unknown]
  - Tooth disorder [Unknown]
  - Femur fracture [Recovering/Resolving]
  - Cellulitis [Unknown]
  - Influenza like illness [Unknown]
  - Musculoskeletal pain [Unknown]
  - Gastrooesophageal reflux disease [Not Recovered/Not Resolved]
  - Device failure [Unknown]
  - Femur fracture [Not Recovered/Not Resolved]
  - Intervertebral disc degeneration [Unknown]
  - Bone loss [Unknown]
  - Low turnover osteopathy [Unknown]
  - Back injury [Unknown]
  - Drug ineffective [Unknown]
  - Myalgia [Unknown]
  - Abdominal discomfort [Unknown]

NARRATIVE: CASE EVENT DATE: 2001
